FAERS Safety Report 11221955 (Version 1)
Quarter: 2015Q2

REPORT INFORMATION
  Report Type: Spontaneous
  Country: FR (occurrence: FR)
  Receive Date: 20150626
  Receipt Date: 20150626
  Transmission Date: 20150821
  Serious: Yes (Death)
  Sender: FDA-Public Use
  Company Number: FR-PFIZER INC-2015211511

PATIENT
  Age: 60 Year
  Sex: Female

DRUGS (9)
  1. LEPTICUR [Suspect]
     Active Substance: TROPATEPINE HYDROCHLORIDE
     Dosage: 10 MG, DAILY
     Route: 048
     Dates: start: 20140709
  2. PARACETAMOL [Suspect]
     Active Substance: ACETAMINOPHEN
     Dosage: UNK
     Route: 048
  3. TRANSILANE [Suspect]
     Active Substance: POTASSIUM BICARBONATE\PSYLLIUM HUSK
     Dosage: UNK
     Route: 048
  4. RAMIPRIL. [Suspect]
     Active Substance: RAMIPRIL
     Dosage: 2.5 MG, DAILY
     Route: 048
     Dates: start: 20140709
  5. CLOPIXOL [Suspect]
     Active Substance: ZUCLOPENTHIXOL ACETATE
     Dosage: 25 MG, DAILY
     Route: 048
  6. GAVISCON [Suspect]
     Active Substance: ALUMINUM HYDROXIDE\MAGNESIUM CARBONATE
     Dosage: UNK
     Route: 048
  7. TEMESTA [Suspect]
     Active Substance: LORAZEPAM
     Dosage: 2.5 MG, DAILY
     Route: 048
  8. INEXIUM [Suspect]
     Active Substance: ESOMEPRAZOLE
     Dosage: 20 MG, DAILY
     Route: 048
  9. BUPRENORPHINE [Suspect]
     Active Substance: BUPRENORPHINE
     Dosage: 8 MG, UNK
     Route: 048

REACTIONS (2)
  - Myocardial infarction [Fatal]
  - Sudden death [Fatal]

NARRATIVE: CASE EVENT DATE: 20150315
